FAERS Safety Report 23571100 (Version 1)
Quarter: 2024Q1

REPORT INFORMATION
  Report Type: Spontaneous
  Country: US (occurrence: US)
  Receive Date: 20240227
  Receipt Date: 20240227
  Transmission Date: 20240410
  Serious: Yes (Death, Other)
  Sender: FDA-Public Use
  Company Number: US-SUN PHARMACEUTICAL INDUSTRIES LTD-2024R1-433517

PATIENT
  Age: 72 Year
  Sex: Male

DRUGS (1)
  1. PREDNISONE [Suspect]
     Active Substance: PREDNISONE
     Indication: Paraneoplastic neurological syndrome
     Dosage: UNK
     Route: 065

REACTIONS (4)
  - Neuroendocrine carcinoma [Fatal]
  - Condition aggravated [Fatal]
  - Respiratory failure [Fatal]
  - Muscular weakness [Fatal]
